FAERS Safety Report 21733662 (Version 1)
Quarter: 2022Q4

REPORT INFORMATION
  Report Type: Spontaneous
  Country: US (occurrence: US)
  Receive Date: 20221215
  Receipt Date: 20221215
  Transmission Date: 20230113
  Serious: Yes (Hospitalization)
  Sender: FDA-Public Use
  Company Number: US-TAKEDA-2022TUS095761

PATIENT
  Age: 73 Year
  Sex: Female

DRUGS (1)
  1. ENTYVIO [Suspect]
     Active Substance: VEDOLIZUMAB
     Indication: Colitis ulcerative
     Dosage: UNK
     Route: 065
     Dates: start: 20221121, end: 20221121

REACTIONS (7)
  - Electrolyte imbalance [Unknown]
  - Blood potassium increased [Unknown]
  - Troponin increased [Unknown]
  - Asthenia [Unknown]
  - Chest pain [Unknown]
  - Nausea [Unknown]
  - Diarrhoea [Unknown]
